FAERS Safety Report 23288295 (Version 4)
Quarter: 2025Q1

REPORT INFORMATION
  Report Type: Spontaneous
  Country: US (occurrence: US)
  Receive Date: 20231212
  Receipt Date: 20250326
  Transmission Date: 20250409
  Serious: Yes (Hospitalization)
  Sender: SANOFI AVENTIS
  Company Number: US-SA-SAC20231211001320

PATIENT
  Age: 57 Year
  Sex: Female

DRUGS (9)
  1. DUPIXENT [Suspect]
     Active Substance: DUPILUMAB
     Indication: Nasal polyps
     Dosage: 300 MG, QOW
     Route: 058
     Dates: start: 20220506
  2. ATORVASTATIN [Concomitant]
     Active Substance: ATORVASTATIN
  3. IBUPROFEN [Concomitant]
     Active Substance: IBUPROFEN
  4. KLONOPIN [Concomitant]
     Active Substance: CLONAZEPAM
  5. LAMICTAL [Concomitant]
     Active Substance: LAMOTRIGINE
  6. MONTELUKAST [Concomitant]
     Active Substance: MONTELUKAST
  7. PROAIR HFA [Concomitant]
     Active Substance: ALBUTEROL SULFATE
  8. SEROQUEL [Concomitant]
     Active Substance: QUETIAPINE FUMARATE
  9. SEROQUEL XR [Concomitant]
     Active Substance: QUETIAPINE FUMARATE

REACTIONS (8)
  - Chondropathy [Not Recovered/Not Resolved]
  - Infection [Not Recovered/Not Resolved]
  - Asthma [Not Recovered/Not Resolved]
  - Impaired quality of life [Unknown]
  - Illness [Unknown]
  - Nasal polyps [Unknown]
  - Condition aggravated [Unknown]
  - Drug ineffective [Unknown]

NARRATIVE: CASE EVENT DATE: 20231127
